FAERS Safety Report 7669704-1 (Version None)
Quarter: 2011Q3

REPORT INFORMATION
  Report Type: 
  Country: None (occurrence: None)
  Receive Date: 20110803
  Receipt Date: 20110719
  Transmission Date: 20111222
  Serious: Yes (Hospitalization)
  Sender: FDA-Public Use
  Company Number: 2011MA009043

PATIENT
  Age: 73 Year
  Sex: Male

DRUGS (3)
  1. FLUDARABINE PHOSPHATE [Suspect]
     Indication: ACUTE MONOCYTIC LEUKAEMIA
     Dates: start: 20060801, end: 20070101
  2. NOVANTRONE [Suspect]
     Indication: ACUTE MONOCYTIC LEUKAEMIA
     Dates: start: 20060801, end: 20070101
  3. CYTARABINE [Suspect]
     Indication: ACUTE MONOCYTIC LEUKAEMIA
     Dates: start: 20060801, end: 20070101

REACTIONS (11)
  - LIVER INJURY [None]
  - HEPATIC FAILURE [None]
  - ASCITES [None]
  - DRUG RESISTANCE [None]
  - IMMUNE SYSTEM DISORDER [None]
  - DISEASE RECURRENCE [None]
  - INTERNATIONAL NORMALISED RATIO INCREASED [None]
  - TREATMENT NONCOMPLIANCE [None]
  - HEPATITIS B [None]
  - HEPATIC ENCEPHALOPATHY [None]
  - HEPATIC CIRRHOSIS [None]
